FAERS Safety Report 21445344 (Version 5)
Quarter: 2023Q1

REPORT INFORMATION
  Report Type: Report from Study
  Country: US (occurrence: US)
  Receive Date: 20221012
  Receipt Date: 20230206
  Transmission Date: 20230417
  Serious: Yes (Hospitalization, Other)
  Sender: FDA-Public Use
  Company Number: US-PFIZER INC-202200230142

PATIENT
  Sex: Male
  Weight: 86.18 kg

DRUGS (2)
  1. LYRICA [Suspect]
     Active Substance: PREGABALIN
     Indication: Pain
     Dosage: UNK
     Route: 065
  2. LYRICA [Suspect]
     Active Substance: PREGABALIN
     Indication: Ligament disorder

REACTIONS (22)
  - Cerebral haemorrhage [Unknown]
  - Head injury [Unknown]
  - Fall [Unknown]
  - COVID-19 [Unknown]
  - Cerebrospinal fluid leakage [Unknown]
  - Lung disorder [Unknown]
  - Dysstasia [Unknown]
  - Neuralgia [Unknown]
  - Asthma [Unknown]
  - Hypoaesthesia [Unknown]
  - Illness [Unknown]
  - Nerve injury [Unknown]
  - Bronchitis [Unknown]
  - Dyspnoea [Unknown]
  - Pain [Unknown]
  - Pain in extremity [Unknown]
  - Feeling abnormal [Unknown]
  - Dizziness [Unknown]
  - Back pain [Unknown]
  - Cough [Unknown]
  - Therapeutic product effect incomplete [Unknown]
  - Off label use [Unknown]
